FAERS Safety Report 4746633-4 (Version None)
Quarter: 2005Q3

REPORT INFORMATION
  Report Type: 
  Country: None (occurrence: None)
  Receive Date: 20050817
  Receipt Date: 20050603
  Transmission Date: 20060218
  Serious: Yes (Other)
  Sender: FDA-Public Use
  Company Number: 2005CG01068

PATIENT
  Age: 80 Year
  Sex: Male

DRUGS (5)
  1. CRESTOR [Suspect]
     Indication: HYPERCHOLESTEROLAEMIA
     Route: 048
     Dates: start: 20030101
  2. SOPROL [Concomitant]
     Indication: MYOCARDIAL INFARCTION
  3. TRIATEC [Concomitant]
     Indication: MYOCARDIAL INFARCTION
  4. KARDEGIC [Concomitant]
     Indication: MYOCARDIAL INFARCTION
  5. PLAVIX [Concomitant]
     Indication: MYOCARDIAL INFARCTION

REACTIONS (3)
  - HAEMATOMA [None]
  - PAIN [None]
  - TREMOR [None]
